FAERS Safety Report 5263462-6 (Version None)
Quarter: 2007Q1

REPORT INFORMATION
  Report Type: 
  Country: None (occurrence: None)
  Receive Date: 20070313
  Receipt Date: 20070308
  Transmission Date: 20070707
  Serious: Yes (Hospitalization)
  Sender: FDA-Public Use
  Company Number: US-JNJFOC-20070101108

PATIENT
  Sex: Female
  Weight: 72.6 kg

DRUGS (1)
  1. ORTHO EVRA [Suspect]
     Indication: DRUG USE FOR UNKNOWN INDICATION
     Route: 062

REACTIONS (4)
  - CROHN'S DISEASE [None]
  - DEEP VEIN THROMBOSIS [None]
  - PERIRECTAL ABSCESS [None]
  - PULMONARY EMBOLISM [None]
